FAERS Safety Report 8924960 (Version 2)
Quarter: 2013Q1

REPORT INFORMATION
  Report Type: Spontaneous
  Country: DE (occurrence: DE)
  Receive Date: 20121126
  Receipt Date: 20130107
  Transmission Date: 20140127
  Serious: Yes (Hospitalization, Other)
  Sender: FDA-Public Use
  Company Number: DE-JNJFOC-20121110578

PATIENT
  Age: 73 Year
  Sex: Male
  Weight: 70 kg

DRUGS (9)
  1. XARELTO [Suspect]
     Indication: CEREBRAL INFARCTION
     Route: 048
     Dates: start: 201209, end: 20121012
  2. XARELTO [Suspect]
     Indication: CEREBROVASCULAR ACCIDENT PROPHYLAXIS
     Route: 048
     Dates: start: 201209, end: 20121012
  3. XARELTO [Suspect]
     Indication: ATRIAL FIBRILLATION
     Route: 048
     Dates: start: 201209, end: 20121012
  4. BISOPROLOL [Concomitant]
     Indication: PRODUCT USED FOR UNKNOWN INDICATION
     Route: 065
  5. RAMIPRIL [Concomitant]
     Indication: PRODUCT USED FOR UNKNOWN INDICATION
     Route: 065
  6. PRAMIPEXOLE [Concomitant]
     Indication: PRODUCT USED FOR UNKNOWN INDICATION
     Route: 065
  7. MADOPAR [Concomitant]
     Indication: PRODUCT USED FOR UNKNOWN INDICATION
     Route: 065
  8. STALEVO [Concomitant]
     Indication: PRODUCT USED FOR UNKNOWN INDICATION
     Route: 065
  9. PK MERZ [Concomitant]
     Indication: PRODUCT USED FOR UNKNOWN INDICATION
     Dosage: 100 UNITS UNSPECIFIED
     Route: 065

REACTIONS (6)
  - Pneumonia [Unknown]
  - Pulmonary embolism [Recovering/Resolving]
  - Dyspnoea [Unknown]
  - Cough [Unknown]
  - Cyanosis [Unknown]
  - Disturbance in attention [Unknown]
